FAERS Safety Report 6148770-9 (Version None)
Quarter: 2009Q2

REPORT INFORMATION
  Report Type: 
  Country: None (occurrence: None)
  Receive Date: 20090406
  Receipt Date: 20090323
  Transmission Date: 20091009
  Serious: Yes (Death, Hospitalization, Other)
  Sender: FDA-Public Use
  Company Number: A-JP2009-24214

PATIENT
  Age: 28 Year
  Sex: Female
  Weight: 52 kg

DRUGS (11)
  1. TRACLEER [Suspect]
     Indication: PULMONARY ARTERIAL HYPERTENSION
     Dosage: 125 MG, BID, ORAL; 62.5 MG, BID, ORAL
     Route: 048
     Dates: start: 20071220, end: 20080123
  2. TRACLEER [Suspect]
     Indication: PULMONARY ARTERIAL HYPERTENSION
     Dosage: 125 MG, BID, ORAL; 62.5 MG, BID, ORAL
     Route: 048
     Dates: start: 20080124, end: 20080602
  3. WARFARIN SODIUM [Concomitant]
  4. BERAPROST SODIUM (BERAPROST SODIUM) [Concomitant]
  5. CANDESARTAN CILEXETIL [Concomitant]
  6. PREDNISOLONE [Concomitant]
  7. LEVOTHYROXINE SODIUM [Concomitant]
  8. LANSOPRAZOLE [Concomitant]
  9. TOCOPHERYL NICOTINATE (TOCOPHERYL NICOTINATE) [Concomitant]
  10. ASCORBIC ACID [Concomitant]
  11. OXYGEN (OXYGEN) [Concomitant]

REACTIONS (9)
  - ABORTION INDUCED [None]
  - CEREBRAL HAEMORRHAGE [None]
  - CONDITION AGGRAVATED [None]
  - DIALYSIS [None]
  - DRUG EXPOSURE DURING PREGNANCY [None]
  - ILEUS [None]
  - INTESTINAL HAEMORRHAGE [None]
  - PREGNANCY [None]
  - SYSTEMIC LUPUS ERYTHEMATOSUS [None]
